FAERS Safety Report 6390673-9 (Version None)
Quarter: 2009Q4

REPORT INFORMATION
  Report Type: 
  Country: None (occurrence: None)
  Receive Date: 20091006
  Receipt Date: 20090925
  Transmission Date: 20100525
  Serious: Yes (Hospitalization)
  Sender: FDA-Public Use
  Company Number: US-ELI_LILLY_AND_COMPANY-US200905001968

PATIENT
  Age: 83 Year
  Sex: Female
  Weight: 67.574 kg

DRUGS (6)
  1. FORTEO [Suspect]
     Indication: OSTEOPOROSIS
     Dosage: 20 UG, DAILY (1/D)
     Dates: start: 20071101
  2. CALCIUM [Concomitant]
     Indication: SUPPLEMENTATION THERAPY
     Dosage: 1500 MG, DAILY (1/D)
  3. FOSAMAX [Concomitant]
     Indication: OSTEOPOROSIS
  4. BONIVA [Concomitant]
     Indication: OSTEOPOROSIS
  5. TOPROL-XL [Concomitant]
  6. ENABLEX                            /01760401/ [Concomitant]

REACTIONS (4)
  - FACIAL BONES FRACTURE [None]
  - FALL [None]
  - JAW FRACTURE [None]
  - TOOTH FRACTURE [None]
